FAERS Safety Report 18807856 (Version 2)
Quarter: 2021Q2

REPORT INFORMATION
  Report Type: Spontaneous
  Country: US (occurrence: US)
  Receive Date: 20210129
  Receipt Date: 20210505
  Transmission Date: 20210717
  Serious: Yes (Other)
  Sender: FDA-Public Use
  Company Number: US-PFIZER INC-2021073751

PATIENT
  Age: 6 Year
  Sex: Female

DRUGS (5)
  1. GRANULOCYTE MACROPHAGE COLONY STIM FACTOR [Suspect]
     Active Substance: GRANULOCYTE-MACROPHAGE COLONY-STIMULATING FACTOR
     Indication: NEUROBLASTOMA
     Dosage: UNK
  2. MIBG?I 123 [Suspect]
     Active Substance: IOBENGUANE I-123
     Indication: NEUROBLASTOMA
     Dosage: UNK
     Dates: start: 2020
  3. UNITUXIN [Suspect]
     Active Substance: DINUTUXIMAB
     Indication: NEUROBLASTOMA
     Dosage: 3.5 MG/ML, CYCLIC
     Route: 041
  4. IRINOTECAN HCL [Suspect]
     Active Substance: IRINOTECAN HYDROCHLORIDE
     Indication: NEUROBLASTOMA
     Dosage: UNK, CYCLIC
  5. TEMOZOLOMIDE. [Suspect]
     Active Substance: TEMOZOLOMIDE
     Indication: NEUROBLASTOMA
     Dosage: UNK

REACTIONS (3)
  - Hypothyroidism [Unknown]
  - Off label use [Unknown]
  - Antibody test positive [Unknown]

NARRATIVE: CASE EVENT DATE: 2020
